FAERS Safety Report 7019959-1 (Version None)
Quarter: 2010Q3

REPORT INFORMATION
  Report Type: 
  Country: None (occurrence: None)
  Receive Date: 20100927
  Receipt Date: 20100915
  Transmission Date: 20110219
  Serious: Yes (Other)
  Sender: FDA-Public Use
  Company Number: 2010SP050137

PATIENT
  Sex: Male

DRUGS (4)
  1. PEG-INTRON [Suspect]
     Indication: HEPATITIS C
     Dates: start: 20100430
  2. RIBAVIRIN [Suspect]
     Indication: HEPATITIS C
     Dates: start: 20100430
  3. GEODON [Concomitant]
  4. CYMBALTA [Concomitant]

REACTIONS (7)
  - ALOPECIA [None]
  - BIPOLAR DISORDER [None]
  - CONDITION AGGRAVATED [None]
  - DEPRESSION [None]
  - INFLUENZA LIKE ILLNESS [None]
  - MEMORY IMPAIRMENT [None]
  - WEIGHT DECREASED [None]
